FAERS Safety Report 4960807-9 (Version None)
Quarter: 2006Q1

REPORT INFORMATION
  Report Type: 
  Country: None (occurrence: None)
  Receive Date: 20060331
  Receipt Date: 20060331
  Transmission Date: 20060701
  Serious: Yes (Life-Threatening, Hospitalization, Disabling, Other)
  Sender: FDA-Public Use
  Company Number: None

PATIENT
  Age: 55 Year
  Sex: Female
  Weight: 59.8748 kg

DRUGS (2)
  1. PHEN-FEN    30MG     WYETH [Suspect]
     Indication: WEIGHT LOSS DIET
     Dosage: 2 TABLETS  DAILY
     Dates: start: 19960426, end: 19961020
  2. PHEN-FEN    30MG     WYETH [Suspect]
     Indication: WEIGHT LOSS DIET
     Dosage: 2 TABLETS  DAILY
     Dates: start: 19960426, end: 19961020

REACTIONS (10)
  - BLOOD PRESSURE INCREASED [None]
  - CARDIAC FAILURE [None]
  - CARDIAC FLUTTER [None]
  - EJECTION FRACTION DECREASED [None]
  - EXTRASYSTOLES [None]
  - MITRAL VALVE INCOMPETENCE [None]
  - MITRAL VALVE REPLACEMENT [None]
  - PALPITATIONS [None]
  - PULMONARY HYPERTENSION [None]
  - TRICUSPID VALVE INCOMPETENCE [None]
